FAERS Safety Report 16803871 (Version 1)
Quarter: 2019Q3

REPORT INFORMATION
  Report Type: Spontaneous
  Country: US (occurrence: US)
  Receive Date: 20190913
  Receipt Date: 20190913
  Transmission Date: 20191005
  Serious: Yes (Life-Threatening, Hospitalization)
  Sender: FDA-Public Use
  Company Number: US-STRIDES ARCOLAB LIMITED-2019SP008511

PATIENT
  Age: 72 Year
  Sex: Female

DRUGS (8)
  1. ATORVASTATIN [Concomitant]
     Active Substance: ATORVASTATIN
     Indication: PRODUCT USED FOR UNKNOWN INDICATION
     Dosage: 20 MG, UNK
     Route: 065
  2. METOPROLOL. [Concomitant]
     Active Substance: METOPROLOL
     Indication: PRODUCT USED FOR UNKNOWN INDICATION
     Dosage: 25 MG, BID
     Route: 065
  3. NIFEDIPINE XL [Interacting]
     Active Substance: NIFEDIPINE
     Indication: PRODUCT USED FOR UNKNOWN INDICATION
     Dosage: 60 MG DAILY, UNK
     Route: 065
  4. LOSARTAN. [Concomitant]
     Active Substance: LOSARTAN
     Indication: PRODUCT USED FOR UNKNOWN INDICATION
     Dosage: 100 MG DAILY, UNK
     Route: 065
  5. CLARITHROMYCIN. [Suspect]
     Active Substance: CLARITHROMYCIN
     Indication: BRONCHITIS
     Dosage: 500 MG, BID
     Route: 065
  6. INSULIN LISPRO W/INSULIN LISPRO PROTAMINE SUS [Concomitant]
     Indication: PRODUCT USED FOR UNKNOWN INDICATION
     Dosage: 40 UNITS EVERY MORNING AND 60 UNITS EVERY EVENING
     Route: 065
  7. PAROXETINE. [Concomitant]
     Active Substance: PAROXETINE
     Indication: PRODUCT USED FOR UNKNOWN INDICATION
     Dosage: 20 MG DAILY, UNK
     Route: 065
  8. PREDNISONE. [Concomitant]
     Active Substance: PREDNISONE
     Indication: BRONCHITIS
     Dosage: 20 MG, QID
     Route: 065

REACTIONS (10)
  - Cardiac arrest [Recovered/Resolved]
  - Acidosis [Recovered/Resolved]
  - Bradycardia [Recovered/Resolved]
  - Blood creatinine increased [Recovered/Resolved]
  - Hypotension [Recovered/Resolved]
  - Condition aggravated [Recovered/Resolved]
  - Drug interaction [Unknown]
  - Hypoperfusion [Recovered/Resolved]
  - Pulseless electrical activity [Recovered/Resolved]
  - Dizziness [Recovered/Resolved]
